FAERS Safety Report 7264411-1 (Version None)
Quarter: 2011Q1

REPORT INFORMATION
  Report Type: 
  Country: None (occurrence: None)
  Receive Date: 20110131
  Receipt Date: 20110119
  Transmission Date: 20110831
  Serious: No
  Sender: FDA-Public Use
  Company Number: US-BIOGENIDEC-2011BI002996

PATIENT
  Age: 53 Year
  Sex: Female

DRUGS (4)
  1. AVONEX [Suspect]
     Route: 030
     Dates: start: 20090218
  2. AVONEX [Suspect]
     Route: 030
     Dates: start: 20040121
  3. AVONEX [Suspect]
     Indication: MULTIPLE SCLEROSIS
     Route: 030
     Dates: start: 20050901
  4. AVONEX [Suspect]
     Route: 030
     Dates: end: 20080425

REACTIONS (2)
  - GAIT DISTURBANCE [None]
  - JOINT STIFFNESS [None]
